FAERS Safety Report 21004580 (Version 3)
Quarter: 2022Q3

REPORT INFORMATION
  Report Type: Report from Study
  Country: IE (occurrence: IE)
  Receive Date: 20220624
  Receipt Date: 20220801
  Transmission Date: 20221027
  Serious: No
  Sender: FDA-Public Use
  Company Number: IE-REGENERON PHARMACEUTICALS, INC.-2022-49620

PATIENT
  Age: 85 Year
  Sex: Male

DRUGS (21)
  1. CEMIPLIMAB [Suspect]
     Active Substance: CEMIPLIMAB
     Indication: Malignant melanoma
     Dosage: 350 MG, Q3W
     Route: 042
     Dates: start: 20210628, end: 20220316
  2. CEMIPLIMAB [Suspect]
     Active Substance: CEMIPLIMAB
     Dosage: 350 MG, Q3W
     Route: 042
     Dates: start: 20220427, end: 20220518
  3. FIANLIMAB [Suspect]
     Active Substance: FIANLIMAB
     Indication: Malignant melanoma
     Dosage: 1600 MG, Q3W
     Route: 042
     Dates: start: 20210628, end: 20220316
  4. FIANLIMAB [Suspect]
     Active Substance: FIANLIMAB
     Dosage: 1600 MG, Q3W
     Route: 042
     Dates: start: 20220427, end: 20220518
  5. NUSEALS ASPIRN [Concomitant]
     Indication: Myocardial ischaemia
     Dosage: 75 MG, QD
     Route: 048
     Dates: start: 1997
  6. BISOPROLOL [Concomitant]
     Active Substance: BISOPROLOL
     Indication: Myocardial ischaemia
     Dosage: 5 MG, QD
     Route: 048
     Dates: start: 1997
  7. LIPITOR [Concomitant]
     Active Substance: ATORVASTATIN CALCIUM
     Indication: Blood cholesterol increased
     Dosage: 10 MG, QD
     Route: 048
     Dates: start: 1997
  8. FLUTICASONE FUROATE\VILANTEROL TRIFENATATE [Concomitant]
     Active Substance: FLUTICASONE FUROATE\VILANTEROL TRIFENATATE
     Indication: Cough
     Dosage: 1 PUFF, QD
     Route: 048
     Dates: start: 202103
  9. CETIRIZINE [Concomitant]
     Active Substance: CETIRIZINE HYDROCHLORIDE
     Indication: Dermatitis
     Dosage: 10 MG, AS NECESSARY
     Route: 048
     Dates: start: 20210722
  10. CHLORPHENIRAMINE MALEATE [Concomitant]
     Active Substance: CHLORPHENIRAMINE MALEATE
     Indication: Prophylaxis
     Dosage: 10 MG, ON DAYS OF INFUSION PRIOR TO REGN2810 INFUSION
     Route: 042
     Dates: start: 20210901
  11. CHLORPHENIRAMINE MALEATE [Concomitant]
     Active Substance: CHLORPHENIRAMINE MALEATE
     Dosage: 8 HOURS PRIOR TO REGN2810 INFUSION
     Route: 048
     Dates: start: 20210831
  12. ACETAMINOPHEN [Concomitant]
     Active Substance: ACETAMINOPHEN
     Indication: Prophylaxis
     Dosage: 1 G, Q3W, ON DAYS OF INFUSION PRIOR TO REGN2810 INFUSION
     Route: 042
     Dates: start: 20210901
  13. ACETAMINOPHEN [Concomitant]
     Active Substance: ACETAMINOPHEN
     Indication: Arthralgia
     Dosage: 1 G, AS NECESSARY
     Route: 048
     Dates: start: 20220110
  14. LACTULOSE [Concomitant]
     Active Substance: LACTULOSE
     Indication: Constipation
     Dosage: 5 ML, AS NECESSARY
     Dates: start: 20210913
  15. SENNA ALEXANDRINA WHOLE [Concomitant]
     Active Substance: SENNA ALEXANDRINA WHOLE
     Indication: Constipation
     Dosage: 2 TABLET, AS NECESSARY
     Dates: start: 20210913
  16. CLOBETASOL [Concomitant]
     Active Substance: CLOBETASOL
     Indication: Dermatitis
     Dosage: 1 UNIT, BID
     Route: 061
     Dates: start: 20210923, end: 20220521
  17. MOVICOL                            /01749801/ [Concomitant]
     Indication: Constipation
     Dosage: 1 TABLET, AS NECESSARY
     Route: 048
     Dates: start: 20210912
  18. CHLOROFORM\CODEINE PHOSPHATE\DRIMIA MARITIMA BULB [Concomitant]
     Active Substance: CHLOROFORM\CODEINE PHOSPHATE\DRIMIA MARITIMA BULB
     Indication: Gout
     Dosage: 5 ML, AS NECESSARY
     Route: 048
     Dates: start: 20211125
  19. SOLIFENACIN\TAMSULOSIN [Concomitant]
     Active Substance: SOLIFENACIN\TAMSULOSIN
     Indication: Nocturia
     Dosage: 6 MG, QD
     Route: 048
     Dates: start: 20211223
  20. EXPUTEX [Concomitant]
     Indication: Lower respiratory tract infection
     Dosage: 5 ML, BID
     Route: 048
     Dates: start: 20220202
  21. AVEENO [Concomitant]
     Active Substance: DIMETHICONE\HOMOSALATE\OCTINOXATE\OCTISALATE\TITANIUM DIOXIDE
     Indication: Prophylaxis
     Dosage: 1 UNIT, BID
     Route: 061
     Dates: start: 20220202

REACTIONS (2)
  - Immune-mediated dermatitis [Not Recovered/Not Resolved]
  - Immune-mediated dermatitis [Recovered/Resolved]

NARRATIVE: CASE EVENT DATE: 20220323
